FAERS Safety Report 16219084 (Version 1)
Quarter: 2019Q2

REPORT INFORMATION
  Report Type: Spontaneous
  Country: MX (occurrence: MX)
  Receive Date: 20190419
  Receipt Date: 20190419
  Transmission Date: 20190711
  Serious: Yes (Other)
  Sender: FDA-Public Use
  Company Number: MX-ANIPHARMA-2019-MX-000007

PATIENT
  Age: 64 Year
  Sex: Female
  Weight: 95 kg

DRUGS (5)
  1. RANITIDINE. [Concomitant]
     Active Substance: RANITIDINE
     Dosage: 150 MG UNK
     Route: 048
     Dates: start: 2014
  2. CANDESARTAN CILEXETIL AND HYDROCHLOROTHIAZIDE [Suspect]
     Active Substance: CANDESARTAN CILEXETIL\HYDROCHLOROTHIAZIDE
     Indication: HYPERTENSION
     Dosage: 32 MG DAILY
     Route: 048
     Dates: start: 2004
  3. OMEPRAZOL [Concomitant]
     Active Substance: OMEPRAZOLE
     Dosage: 40 MG UNK
     Route: 048
     Dates: start: 2014
  4. INSULINA P.Z.PURIFICADA [Concomitant]
     Dosage: UNK
     Route: 058
     Dates: start: 1985
  5. METFORMINA ^NOVARTIS^ [Concomitant]
     Dosage: UNK
     Route: 048
     Dates: start: 1985

REACTIONS (2)
  - Burning sensation [Unknown]
  - Product dose omission [Recovered/Resolved]

NARRATIVE: CASE EVENT DATE: 2014
